FAERS Safety Report 9341218 (Version 1)
Quarter: 2013Q2

REPORT INFORMATION
  Report Type: Spontaneous
  Country: US (occurrence: US)
  Receive Date: 20130611
  Receipt Date: 20130611
  Transmission Date: 20140414
  Serious: Yes (Other)
  Sender: FDA-Public Use
  Company Number: US-AMGEN-USASP2013040229

PATIENT
  Age: 80 Year
  Sex: Female
  Weight: 54.9 kg

DRUGS (3)
  1. SENSIPAR [Suspect]
     Indication: HYPERPARATHYROIDISM SECONDARY
  2. RENVELA [Concomitant]
  3. ZEMPLAR [Concomitant]
     Dosage: 2 MUG, UNK

REACTIONS (8)
  - Confusional state [Unknown]
  - Palpitations [Unknown]
  - Heart rate increased [Unknown]
  - Fatigue [Unknown]
  - Tremor [Unknown]
  - Asthenia [Unknown]
  - Blood parathyroid hormone increased [Unknown]
  - Weight decreased [Unknown]
